FAERS Safety Report 20346995 (Version 1)
Quarter: 2022Q1

REPORT INFORMATION
  Report Type: Report from Study
  Country: US (occurrence: None)
  Receive Date: 20220118
  Receipt Date: 20220118
  Transmission Date: 20220423
  Serious: Yes (Life-Threatening, Hospitalization)
  Sender: FDA-Public Use
  Company Number: US-Merck Healthcare KGaA-9292504

PATIENT
  Age: 66 Year
  Sex: Male

DRUGS (1)
  1. MAVENCLAD [Suspect]
     Active Substance: CLADRIBINE
     Indication: Multiple sclerosis
     Dosage: YEAR ONE THERAPY
     Route: 048
     Dates: start: 20210515

REACTIONS (4)
  - Pneumonia aspiration [Not Recovered/Not Resolved]
  - Pneumonia [Unknown]
  - General physical health deterioration [Unknown]
  - Therapeutic response decreased [Unknown]

NARRATIVE: CASE EVENT DATE: 20211001
